FAERS Safety Report 8575139 (Version 4)
Quarter: 2014Q3

REPORT INFORMATION
  Report Type: Spontaneous
  Country: FR (occurrence: FR)
  Receive Date: 20120523
  Receipt Date: 20140724
  Transmission Date: 20150326
  Serious: Yes (Other)
  Sender: FDA-Public Use
  Company Number: PHHY2012FR041961

PATIENT
  Age: 55 Year
  Sex: Male

DRUGS (8)
  1. CRESTOR [Concomitant]
     Active Substance: ROSUVASTATIN CALCIUM
     Dosage: 20 MG, QD
     Dates: start: 20120207
  2. LAMALINE [Concomitant]
     Active Substance: ACETAMINOPHEN\CAFFEINE\OPIUM
     Dosage: UNK UKN, UNK
     Dates: start: 20120207, end: 20120213
  3. VOLTARENE [Suspect]
     Active Substance: DICLOFENAC SODIUM
     Indication: SPINAL PAIN
     Dosage: 75 MG, BID
     Route: 048
     Dates: start: 20120207, end: 20120208
  4. FORLAX [Concomitant]
     Active Substance: POLYETHYLENE GLYCOL 4000
     Dosage: UNK UKN, UNK
     Dates: start: 20120207
  5. MIOREL [Concomitant]
     Active Substance: ORPHENADRINE
     Dosage: 2 DF, BID
     Dates: start: 20120207, end: 20120213
  6. PROFENID [Suspect]
     Active Substance: KETOPROFEN
     Dosage: 100 MG, BID
     Route: 030
     Dates: start: 20120208, end: 20120222
  7. INIPOMP [Concomitant]
     Active Substance: PANTOPRAZOLE SODIUM
     Dosage: UNK UKN, UNK
     Dates: start: 20120207
  8. ACTISKENAN [Concomitant]
     Active Substance: MORPHINE SULFATE
     Dates: start: 20120214

REACTIONS (4)
  - Bone abscess [Recovered/Resolved]
  - Spondylitis [Recovered/Resolved]
  - Bacteraemia [Recovered/Resolved]
  - Pleurisy [Recovered/Resolved]

NARRATIVE: CASE EVENT DATE: 201202
